FAERS Safety Report 9287805 (Version 1)
Quarter: 2013Q2

REPORT INFORMATION
  Report Type: Spontaneous
  Country: US (occurrence: US)
  Receive Date: 20130514
  Receipt Date: 20130514
  Transmission Date: 20140414
  Serious: No
  Sender: FDA-Public Use
  Company Number: US-PFIZER INC-2013144302

PATIENT
  Age: 65 Year
  Sex: Female

DRUGS (1)
  1. INLYTA [Suspect]
     Indication: RENAL CANCER
     Dosage: 2.5 MG, 1X/DAY
     Dates: start: 20130124, end: 20130503

REACTIONS (2)
  - Disease progression [Unknown]
  - Renal cancer [Unknown]
